FAERS Safety Report 13994353 (Version 1)
Quarter: 2017Q3

REPORT INFORMATION
  Report Type: Other
  Country: GB (occurrence: US)
  Receive Date: 20170920
  Receipt Date: 20170920
  Transmission Date: 20171128
  Serious: Yes (Death, Other)
  Sender: FDA-Public Use
  Company Number: US-INTERNATIONAL MEDICATION SYSTEMS, LIMITED-2027025

PATIENT
  Age: 34 Year
  Sex: Female

DRUGS (6)
  1. CLONAZEPAM. [Suspect]
     Active Substance: CLONAZEPAM
  2. 7-AMINOCLONAZEPAM [Suspect]
     Active Substance: CLONAZEPAM
  3. MORPHINE [Suspect]
     Active Substance: MORPHINE
  4. BENZOYLECGONINE [Suspect]
     Active Substance: BENZOYLECGONINE
  5. CARFENTANIL [Suspect]
     Active Substance: CARFENTANIL
  6. METAMFETAMINE [Suspect]
     Active Substance: METHAMPHETAMINE

REACTIONS (2)
  - Death [Fatal]
  - Toxicity to various agents [Fatal]
